FAERS Safety Report 10188024 (Version 3)
Quarter: 2014Q2

REPORT INFORMATION
  Report Type: Spontaneous
  Country: JP (occurrence: JP)
  Receive Date: 20140522
  Receipt Date: 20140605
  Transmission Date: 20141212
  Serious: Yes (Hospitalization)
  Sender: FDA-Public Use
  Company Number: JP-GE HEALTHCARE MEDICAL DIAGNOSTICS-OMPQ-PR-1404S-0434

PATIENT
  Age: 47 Year
  Sex: Male
  Weight: 70 kg

DRUGS (7)
  1. OMNIPAQUE [Suspect]
     Indication: PRODUCT USED FOR UNKNOWN INDICATION
     Route: 042
     Dates: start: 20140401, end: 20140401
  2. OMNIPAQUE [Suspect]
     Indication: DIAGNOSTIC PROCEDURE
  3. SOLU CORTEF [Concomitant]
     Dates: start: 20140314, end: 20140401
  4. ATORVASTATIN [Concomitant]
     Dates: start: 20140314
  5. TRESIBA [Concomitant]
     Dates: start: 20140314
  6. MYOCOR [Concomitant]
     Dates: start: 20140314, end: 20140314
  7. COREBETA [Concomitant]
     Dates: start: 20140314, end: 20140314

REACTIONS (1)
  - Anaphylactoid shock [Recovered/Resolved]
